FAERS Safety Report 4322115-9 (Version None)
Quarter: 2004Q1

REPORT INFORMATION
  Report Type: 
  Country: None (occurrence: None)
  Receive Date: 20040323
  Receipt Date: 20040213
  Transmission Date: 20041129
  Serious: Yes (Hospitalization)
  Sender: FDA-Public Use
  Company Number: DE-GLAXOSMITHKLINE-D0043185A

PATIENT
  Age: 39 Year
  Sex: Male
  Weight: 53 kg

DRUGS (5)
  1. IMIGRAN [Suspect]
     Indication: CLUSTER HEADACHE
     Route: 058
     Dates: start: 20030901, end: 20040201
  2. METHADONE [Concomitant]
     Indication: DRUG DEPENDENCE
     Dosage: 40MG PER DAY
     Route: 065
     Dates: start: 20010201, end: 20040201
  3. BENZODIAZEPINES [Concomitant]
     Route: 065
     Dates: start: 20010201, end: 20040201
  4. CODEIN [Concomitant]
     Route: 065
  5. MORPHINE [Concomitant]
     Route: 065

REACTIONS (4)
  - MUSCLE CRAMP [None]
  - NECK PAIN [None]
  - OVERDOSE [None]
  - POSTURE ABNORMAL [None]
